FAERS Safety Report 7495993-2 (Version None)
Quarter: 2011Q2

REPORT INFORMATION
  Report Type: 
  Country: None (occurrence: None)
  Receive Date: 20110523
  Receipt Date: 20110511
  Transmission Date: 20111010
  Serious: Yes (Hospitalization)
  Sender: FDA-Public Use
  Company Number: JP-JNJFOC-20110404308

PATIENT
  Sex: Male

DRUGS (19)
  1. TOPIRAMATE [Suspect]
     Route: 048
     Dates: start: 20100831, end: 20100906
  2. TOPIRAMATE [Suspect]
     Route: 048
     Dates: start: 20100531, end: 20100620
  3. TOPIRAMATE [Suspect]
     Route: 048
     Dates: start: 20100621, end: 20100711
  4. SYMMETREL [Suspect]
     Indication: PRODUCT USED FOR UNKNOWN INDICATION
     Route: 065
  5. PHENOBARBITAL SODIUM 100MG CAP [Concomitant]
     Route: 065
     Dates: start: 20100831, end: 20100831
  6. PHENOBARBITAL SODIUM 100MG CAP [Concomitant]
     Route: 065
     Dates: start: 20100907, end: 20100907
  7. PHENOBARBITAL TAB [Concomitant]
     Route: 048
     Dates: start: 20100911, end: 20100914
  8. SELENICA-R [Concomitant]
     Indication: EPILEPSY
     Route: 048
  9. LAMICTAL [Concomitant]
     Route: 048
     Dates: start: 20100420, end: 20100509
  10. PHENOBARBITAL TAB [Concomitant]
     Route: 048
     Dates: start: 20100908, end: 20100910
  11. PHENOBARBITAL TAB [Concomitant]
     Route: 048
     Dates: start: 20100915
  12. TOPIRAMATE [Suspect]
     Route: 048
     Dates: start: 20100802, end: 20100822
  13. TOPIRAMATE [Suspect]
     Route: 048
     Dates: start: 20100419, end: 20100530
  14. LAMICTAL [Concomitant]
     Indication: EPILEPSY
     Route: 048
     Dates: end: 20100418
  15. PHENOBARBITAL SODIUM 100MG CAP [Concomitant]
     Route: 065
     Dates: start: 20100913, end: 20100913
  16. TOPIRAMATE [Suspect]
     Indication: EPILEPSY
     Route: 048
     Dates: start: 20100823, end: 20100830
  17. TOPIRAMATE [Suspect]
     Route: 048
     Dates: start: 20100712, end: 20100801
  18. TOPIRAMATE [Suspect]
     Route: 048
     Dates: start: 20100907
  19. ZONISAMIDE [Suspect]
     Indication: EPILEPSY
     Route: 048
     Dates: end: 20100927

REACTIONS (2)
  - ALTERED STATE OF CONSCIOUSNESS [None]
  - STATUS EPILEPTICUS [None]
